FAERS Safety Report 20260672 (Version 1)
Quarter: 2021Q4

REPORT INFORMATION
  Report Type: Spontaneous
  Country: US (occurrence: US)
  Receive Date: 20211230
  Receipt Date: 20211230
  Transmission Date: 20220303
  Serious: Yes (Congenital Anomaly, Other)
  Sender: FDA-Public Use
  Company Number: US-BIOGEN-2021BI01082240

PATIENT
  Sex: Female

DRUGS (1)
  1. TECFIDERA [Suspect]
     Active Substance: DIMETHYL FUMARATE
     Indication: Maternal exposure timing unspecified
     Route: 064
     Dates: start: 20170727, end: 20200507

REACTIONS (8)
  - Ankyloglossia congenital [Unknown]
  - Autism spectrum disorder [Unknown]
  - Motor developmental delay [Unknown]
  - Speech disorder developmental [Unknown]
  - Premature baby [Unknown]
  - Small for dates baby [Unknown]
  - Toe walking [Unknown]
  - Foetal exposure during pregnancy [Recovered/Resolved]
